FAERS Safety Report 20367732 (Version 1)
Quarter: 2022Q1

REPORT INFORMATION
  Report Type: Spontaneous
  Country: US (occurrence: US)
  Receive Date: 20220124
  Receipt Date: 20220124
  Transmission Date: 20220423
  Serious: Yes (Hospitalization, Other)
  Sender: FDA-Public Use
  Company Number: US-CIPLA LTD.-2022US00343

PATIENT

DRUGS (22)
  1. AZACITIDINE [Suspect]
     Active Substance: AZACITIDINE
     Indication: Myelodysplastic syndrome
     Dosage: UNK
     Route: 065
     Dates: start: 201507
  2. CYCLOPHOSPHAMIDE [Suspect]
     Active Substance: CYCLOPHOSPHAMIDE
     Indication: Diffuse large B-cell lymphoma
     Dosage: UNK, R-CHOP
     Route: 065
     Dates: start: 200908
  3. DOXORUBICIN [Suspect]
     Active Substance: DOXORUBICIN
     Indication: Diffuse large B-cell lymphoma
     Dosage: UNK, R-CHOP
     Route: 065
     Dates: start: 200908
  4. PREDNISONE [Suspect]
     Active Substance: PREDNISONE
     Indication: Diffuse large B-cell lymphoma
     Dosage: UNK, R-CHOP
     Route: 065
     Dates: start: 200908
  5. ETOPOSIDE [Suspect]
     Active Substance: ETOPOSIDE
     Indication: Diffuse large B-cell lymphoma recurrent
     Dosage: UNK, R-ESHAP
     Route: 065
     Dates: start: 201004
  6. ETOPOSIDE [Suspect]
     Active Substance: ETOPOSIDE
     Indication: Autologous bone marrow transplantation therapy
     Dosage: UNK, BEAM THERAPY
     Route: 065
     Dates: start: 201007
  7. CYTARABINE [Suspect]
     Active Substance: CYTARABINE
     Indication: Autologous bone marrow transplantation therapy
     Dosage: UNK, R-ESHAP (HIGH DOSE)
     Route: 065
     Dates: start: 201004
  8. CYTARABINE [Suspect]
     Active Substance: CYTARABINE
     Indication: Diffuse large B-cell lymphoma recurrent
     Dosage: UNK, BEAM THERAPY
     Route: 065
     Dates: start: 201007
  9. CISPLATIN [Suspect]
     Active Substance: CISPLATIN
     Indication: Diffuse large B-cell lymphoma recurrent
     Dosage: UNK, R-ESHAP
     Route: 065
     Dates: start: 201004
  10. MELPHALAN [Suspect]
     Active Substance: MELPHALAN
     Indication: Autologous bone marrow transplantation therapy
     Dosage: UNK
     Route: 065
     Dates: start: 201007
  11. MYCOPHENOLATE MOFETIL [Suspect]
     Active Substance: MYCOPHENOLATE MOFETIL
     Indication: Prophylaxis against graft versus host disease
     Dosage: UNK
     Route: 065
     Dates: start: 2016
  12. MYCOPHENOLATE MOFETIL [Suspect]
     Active Substance: MYCOPHENOLATE MOFETIL
     Indication: Immunosuppressant drug therapy
  13. VORICONAZOLE [Suspect]
     Active Substance: VORICONAZOLE
     Indication: Antifungal prophylaxis
     Dosage: 200 MILLIGRAM, BID
     Route: 065
  14. RITUXIMAB [Suspect]
     Active Substance: RITUXIMAB
     Indication: Diffuse large B-cell lymphoma
     Dosage: UNK, R-CHOP
     Route: 065
     Dates: start: 200908
  15. RITUXIMAB [Suspect]
     Active Substance: RITUXIMAB
     Indication: Diffuse large B-cell lymphoma recurrent
     Dosage: UNK, R-ESHAP
     Route: 065
     Dates: start: 201004
  16. CARMUSTINE [Suspect]
     Active Substance: CARMUSTINE
     Indication: Autologous bone marrow transplantation therapy
     Dosage: UNK, BEAM THERAPY
     Route: 065
     Dates: start: 201007
  17. VINCRISTINE [Suspect]
     Active Substance: VINCRISTINE
     Indication: Diffuse large B-cell lymphoma
     Dosage: UNK, R-CHOP
     Route: 065
     Dates: start: 200908
  18. METHYLPREDNISOLONE [Suspect]
     Active Substance: METHYLPREDNISOLONE
     Indication: Diffuse large B-cell lymphoma recurrent
     Dosage: UNK, R-ESHAP
     Route: 065
     Dates: start: 201004
  19. ATOVAQUONE [Concomitant]
     Active Substance: ATOVAQUONE
     Indication: Pneumocystis jirovecii pneumonia
     Dosage: UNK
     Route: 065
  20. ATOVAQUONE [Concomitant]
     Active Substance: ATOVAQUONE
     Indication: Prophylaxis
  21. VALACYCLOVIR HYDROCHLORIDE [Concomitant]
     Active Substance: VALACYCLOVIR HYDROCHLORIDE
     Indication: Herpes zoster immunisation
     Dosage: UNK
     Route: 065
  22. VALACYCLOVIR HYDROCHLORIDE [Concomitant]
     Active Substance: VALACYCLOVIR HYDROCHLORIDE
     Indication: Prophylaxis

REACTIONS (2)
  - Histoplasmosis [Recovered/Resolved]
  - Acute pulmonary histoplasmosis [Recovered/Resolved]
